FAERS Safety Report 19145424 (Version 1)
Quarter: 2021Q2

REPORT INFORMATION
  Report Type: Spontaneous
  Country: US (occurrence: US)
  Receive Date: 20210416
  Receipt Date: 20210416
  Transmission Date: 20210717
  Serious: No
  Sender: FDA-Public Use
  Company Number: US-IGSA-BIG0012848

PATIENT
  Age: 67 Year
  Sex: Female

DRUGS (4)
  1. HUMAN NORMAL IMMUNOGLOBULIN (IV) [Suspect]
     Active Substance: HUMAN IMMUNOGLOBULIN G
     Indication: HYPOGAMMAGLOBULINAEMIA
     Route: 058
  2. PREDNISONE. [Concomitant]
     Active Substance: PREDNISONE
     Indication: CRYOGLOBULINAEMIA
  3. TACROLIMUS. [Concomitant]
     Active Substance: TACROLIMUS
     Indication: CRYOGLOBULINAEMIA
  4. ENTECAVIR. [Concomitant]
     Active Substance: ENTECAVIR
     Indication: HEPATITIS B

REACTIONS (5)
  - Cryoglobulinaemia [Unknown]
  - Condition aggravated [Unknown]
  - Palpable purpura [Unknown]
  - Blood creatinine increased [Recovering/Resolving]
  - Cryoglobulins present [Unknown]
